FAERS Safety Report 8414423-7 (Version None)
Quarter: 2012Q2

REPORT INFORMATION
  Report Type: 
  Country: None (occurrence: None)
  Receive Date: 20120605
  Receipt Date: 20120523
  Transmission Date: 20120825
  Serious: Yes (Other)
  Sender: FDA-Public Use
  Company Number: IN-MYLANLABS-2012S1011029

PATIENT
  Age: 35 Year
  Sex: Female

DRUGS (7)
  1. TRIFLUOPERAZINE HCL [Concomitant]
     Indication: SCHIZOPHRENIA, PARANOID TYPE
     Route: 065
  2. CLOZAPINE [Interacting]
     Indication: SCHIZOPHRENIA, PARANOID TYPE
     Dosage: 25 MG/DAY; THEN SLOWLY TITRATED TO 400 MG/DAY OVER 2 MONTHS
     Route: 065
  3. CLOZAPINE [Interacting]
     Dosage: 400 MG/DAY; THEN DOSAGE DECREASED TO 200 MG/DAY WITHIN 1MO
     Route: 065
  4. VALPROIC ACID [Suspect]
     Indication: SCHIZOPHRENIA, PARANOID TYPE
     Dosage: 1000 MG/DAY
     Route: 065
  5. CLOZAPINE [Interacting]
     Dosage: 200 MG/DAY
     Route: 065
  6. OLANZAPINE [Concomitant]
     Indication: SCHIZOPHRENIA, PARANOID TYPE
     Dosage: UP TO 30 MG/DAY
     Route: 065
  7. RISPERIDONE [Interacting]
     Indication: SCHIZOPHRENIA, PARANOID TYPE
     Dosage: 4 MG/DAY
     Route: 065

REACTIONS (3)
  - ASTERIXIS [None]
  - GRAND MAL CONVULSION [None]
  - DRUG INTERACTION [None]
